FAERS Safety Report 16598053 (Version 1)
Quarter: 2019Q3

REPORT INFORMATION
  Report Type: Spontaneous
  Country: NL (occurrence: NL)
  Receive Date: 20190719
  Receipt Date: 20190719
  Transmission Date: 20191004
  Serious: Yes (Hospitalization)
  Sender: FDA-Public Use
  Company Number: NL-MYLANLABS-2019M1067299

PATIENT
  Age: 73 Year
  Sex: Male
  Weight: 80 kg

DRUGS (6)
  1. METFORMINE                         /00082701/ [Concomitant]
     Active Substance: METFORMIN HYDROCHLORIDE
     Dosage: 500 MILLIGRAM, BID
  2. GLICLAZIDE [Concomitant]
     Active Substance: GLICLAZIDE
     Dosage: 30 MILLIGRAM, QD
  3. METOPROLOL. [Suspect]
     Active Substance: METOPROLOL
     Indication: PROPHYLAXIS
     Dosage: 25 MILLIGRAM, QD (1X PER DAG)
     Route: 048
     Dates: start: 20150107
  4. AMLODIPINE [Suspect]
     Active Substance: AMLODIPINE BESYLATE
     Indication: HYPERTENSION
     Dosage: 10 MILLIGRAM, QD
     Route: 048
     Dates: start: 19880504
  5. NITROLINGUAL [Concomitant]
     Active Substance: NITROGLYCERIN
     Dosage: UNK
  6. ACETYLSALICYLZUUR [Concomitant]
     Active Substance: ASPIRIN
     Dosage: 80 MILLIGRAM, QD

REACTIONS (5)
  - Peripheral coldness [Not Recovered/Not Resolved]
  - Oedema peripheral [Not Recovered/Not Resolved]
  - Blood glucose increased [Unknown]
  - Erectile dysfunction [Not Recovered/Not Resolved]
  - Muscle spasms [Unknown]

NARRATIVE: CASE EVENT DATE: 20150120
